FAERS Safety Report 6614331-8 (Version None)
Quarter: 2010Q1

REPORT INFORMATION
  Report Type: 
  Country: None (occurrence: None)
  Receive Date: 20100304
  Receipt Date: 20100226
  Transmission Date: 20100710
  Serious: Yes (Hospitalization)
  Sender: FDA-Public Use
  Company Number: CA-B.I. PHARMACEUTICALS,INC./RIDGEFIELD-2008-DE-02671DE

PATIENT
  Age: 87 Year
  Sex: Female

DRUGS (5)
  1. AGGRENOX [Suspect]
     Indication: PROPHYLAXIS
     Route: 065
     Dates: start: 20001107
  2. AGGRENOX [Suspect]
     Route: 065
  3. AGGRENOX [Suspect]
     Route: 065
     Dates: start: 20060103, end: 20060104
  4. AMLODIPINE (NON-BIDRUG) [Suspect]
     Indication: HYPERTENSION
     Dosage: 5 MG
     Route: 065
     Dates: start: 20020325
  5. NORFLOXACIN [Concomitant]
     Dosage: 800 MG
     Route: 065
     Dates: start: 20051202

REACTIONS (2)
  - EPIGLOTTITIS [None]
  - LARYNGEAL OEDEMA [None]
